FAERS Safety Report 10824175 (Version 1)
Quarter: 2015Q1

REPORT INFORMATION
  Report Type: Spontaneous
  Country: US (occurrence: None)
  Receive Date: 20150218
  Receipt Date: 20150218
  Transmission Date: 20150721
  Serious: Yes (Other)
  Sender: FDA-Public Use
  Company Number: None

PATIENT
  Age: 65 Year
  Sex: Female
  Weight: 61.24 kg

DRUGS (29)
  1. FLUOCINONIDE. [Concomitant]
     Active Substance: FLUOCINONIDE
  2. ALPRAZOLAM. [Concomitant]
     Active Substance: ALPRAZOLAM
  3. FIBER [Concomitant]
     Active Substance: PSYLLIUM HUSK
  4. BENADRYL CREAM [Concomitant]
  5. CAROFATE [Concomitant]
  6. LANSOPRAZOLE. [Concomitant]
     Active Substance: LANSOPRAZOLE
  7. EFFEXOR [Suspect]
     Active Substance: VENLAFAXINE HYDROCHLORIDE
     Indication: POST-TRAUMATIC STRESS DISORDER
     Dosage: STARTED 75 MG 1/DAY, 1 TABLET, 1/DAY, BY MOUTH
     Route: 048
     Dates: start: 20140306, end: 20150102
  8. ATROVENT [Concomitant]
     Active Substance: IPRATROPIUM BROMIDE
  9. PROZAC [Concomitant]
     Active Substance: FLUOXETINE HYDROCHLORIDE
  10. ROBITUSSIN DM [Concomitant]
     Active Substance: DEXTROMETHORPHAN HYDROBROMIDE\GUAIFENESIN
  11. CORTIZONE 10 [Concomitant]
     Active Substance: HYDROCORTISONE
  12. NEIL MED SINUS RINSE [Concomitant]
  13. EFFEXOR [Suspect]
     Active Substance: VENLAFAXINE HYDROCHLORIDE
     Indication: BIPOLAR DISORDER
     Dosage: STARTED 75 MG 1/DAY, 1 TABLET, 1/DAY, BY MOUTH
     Route: 048
     Dates: start: 20140306, end: 20150102
  14. LAMOTRIGINE. [Concomitant]
     Active Substance: LAMOTRIGINE
  15. NASONEX [Concomitant]
     Active Substance: MOMETASONE FUROATE
  16. SYMBICORT [Concomitant]
     Active Substance: BUDESONIDE\FORMOTEROL FUMARATE DIHYDRATE
  17. MIRALAX [Concomitant]
     Active Substance: POLYETHYLENE GLYCOL 3350
  18. SEROQUEL [Concomitant]
     Active Substance: QUETIAPINE FUMARATE
  19. RESTORIL [Concomitant]
     Active Substance: TEMAZEPAM
  20. CALCIUM + D [Concomitant]
     Active Substance: CALCIUM\VITAMIN D
  21. TYLENOL P.M. EXTRA STRENGTH [Concomitant]
  22. EUCERIN [Concomitant]
     Active Substance: ENSULIZOLE\EUCERIN\OCTINOXATE\OCTISALATE\TITANIUM DIOXIDE\ZINC OXIDE
  23. STOOL SOFTENER [Concomitant]
     Active Substance: DOCUSATE CALCIUM
  24. EFFEXOR [Suspect]
     Active Substance: VENLAFAXINE HYDROCHLORIDE
     Indication: DEPRESSION
     Dosage: STARTED 75 MG 1/DAY, 1 TABLET, 1/DAY, BY MOUTH
     Route: 048
     Dates: start: 20140306, end: 20150102
  25. EFFEXOR [Suspect]
     Active Substance: VENLAFAXINE HYDROCHLORIDE
     Indication: ANXIETY
     Dosage: STARTED 75 MG 1/DAY, 1 TABLET, 1/DAY, BY MOUTH
     Route: 048
     Dates: start: 20140306, end: 20150102
  26. LIDEX [Concomitant]
     Active Substance: FLUOCINONIDE
  27. MULTIVITAMINS [Concomitant]
     Active Substance: VITAMINS
  28. GENTLE LAXATIVE [Concomitant]
     Active Substance: BISACODYL
  29. HEMORRHOIDAL - H.C. [Concomitant]

REACTIONS (18)
  - Coordination abnormal [None]
  - Chills [None]
  - Dry mouth [None]
  - Mental status changes [None]
  - Nervousness [None]
  - Headache [None]
  - Vision blurred [None]
  - Abnormal behaviour [None]
  - Dizziness [None]
  - Confusional state [None]
  - Somnolence [None]
  - Restlessness [None]
  - Fatigue [None]
  - Mood altered [None]
  - Pruritus [None]
  - Irritability [None]
  - Blood pressure increased [None]
  - Agitation [None]

NARRATIVE: CASE EVENT DATE: 20140316
